FAERS Safety Report 8829323 (Version 2)
Quarter: 2013Q1

REPORT INFORMATION
  Report Type: Spontaneous
  Country: FR (occurrence: FR)
  Receive Date: 20121009
  Receipt Date: 20130117
  Transmission Date: 20140127
  Serious: Yes (Hospitalization)
  Sender: FDA-Public Use
  Company Number: FR-AMGEN-FRASP2012061615

PATIENT
  Age: 61 Year
  Sex: Male

DRUGS (18)
  1. ARANESP [Suspect]
     Indication: ANAEMIA
     Dosage: 500 MUG, Q3WK
     Route: 058
  2. ARANESP [Suspect]
     Dosage: 500 MUG, ONE INJECTION EVERY 3 WEEK
     Route: 058
     Dates: start: 20120815, end: 20120820
  3. ARANESP [Suspect]
     Dosage: 500 MUG, ONE INJECTION EVERY 3 WEEK
     Route: 058
  4. MABTHERA [Suspect]
     Indication: LYMPHOMA
     Dosage: 623 MG, UNK
     Route: 042
     Dates: start: 20120620
  5. DOXORUBICINE                       /00330901/ [Suspect]
     Indication: LYMPHOMA
     Dosage: 83 MG, UNK
     Route: 042
     Dates: start: 20120620
  6. ENDOXAN [Suspect]
     Indication: LYMPHOMA
     Dosage: 1250 MG, UNK
     Route: 042
     Dates: start: 20120620
  7. VINCRISTINE [Suspect]
     Indication: LYMPHOMA
     Dosage: 2MG/2ML
     Route: 042
     Dates: start: 20120620
  8. BACTRIM [Suspect]
     Indication: PROPHYLAXIS
     Dosage: 1 DF, 3 TIMES/WK
     Route: 048
  9. ZYLORIC [Suspect]
     Indication: GOUT
     Dosage: 300 MG, UNK
     Route: 048
  10. LOXEN [Suspect]
     Indication: HYPERTENSION
     Dosage: UNK
     Route: 048
  11. METHYLPREDNISOLONE [Suspect]
     Indication: PROPHYLAXIS
     Dosage: 120 MG, UNK
     Route: 042
     Dates: start: 20120620
  12. ZOPHREN [Suspect]
     Dosage: 1 DF, UNK
     Route: 042
     Dates: start: 20120620
  13. UROMITEXAN [Suspect]
     Indication: PROPHYLAXIS
     Dosage: 415 MG, BID
     Route: 042
     Dates: start: 20120220
  14. ZELITREX [Suspect]
     Dosage: 500 MG, BID
     Route: 048
  15. SPECIAFOLDINE [Suspect]
     Indication: VITAMIN SUPPLEMENTATION
     Route: 048
  16. GRANOCYTE [Suspect]
     Dosage: 1 DF, QD
     Route: 058
  17. POLARAMINE [Suspect]
     Indication: HYPERSENSITIVITY
     Dosage: 2 MG, UNK
     Route: 048
  18. CORTANCYL [Suspect]
     Dosage: UNK
     Route: 048
     Dates: start: 20120621

REACTIONS (1)
  - Neuropathy peripheral [Not Recovered/Not Resolved]
